FAERS Safety Report 13175641 (Version 12)
Quarter: 2020Q2

REPORT INFORMATION
  Report Type: Report from Study
  Country: BR (occurrence: BR)
  Receive Date: 20170201
  Receipt Date: 20200626
  Transmission Date: 20200713
  Serious: Yes (Hospitalization, Other)
  Sender: FDA-Public Use
  Company Number: BR-SA-2017SA013369

PATIENT

DRUGS (9)
  1. SOLU-MEDROL [Concomitant]
     Active Substance: METHYLPREDNISOLONE SODIUM SUCCINATE
     Dosage: UNK UNK,QD
     Route: 042
     Dates: start: 20170116, end: 20170119
  2. LIORESAL [Concomitant]
     Active Substance: BACLOFEN
     Dosage: UNK UNK,QD
     Route: 048
  3. ANSENTRON [Concomitant]
     Active Substance: ONDANSETRON HYDROCHLORIDE
     Dosage: 8 MG,QD
     Route: 042
     Dates: start: 20170116, end: 20170116
  4. ALEMTUZUMAB [Suspect]
     Active Substance: ALEMTUZUMAB
     Indication: MULTIPLE SCLEROSIS
     Dosage: 5 DF, QD
     Route: 041
     Dates: start: 20170116
  5. ALEMTUZUMAB [Suspect]
     Active Substance: ALEMTUZUMAB
     Dosage: 3 DF,UNK
     Route: 041
     Dates: start: 20180129, end: 20180129
  6. PANTOPRAZOLE [Concomitant]
     Active Substance: PANTOPRAZOLE
     Dosage: UNK UNK,QD
     Route: 048
     Dates: start: 20170116, end: 20170122
  7. LEXOTAN [Concomitant]
     Active Substance: BROMAZEPAM
     Dosage: UNK UNK,QD
     Route: 048
     Dates: start: 20170116, end: 20170116
  8. CLEXANE [Concomitant]
     Active Substance: ENOXAPARIN SODIUM
     Dosage: UNK UNK,QD
     Route: 058
     Dates: start: 20170116, end: 20170123
  9. ACICLOVIR [Concomitant]
     Active Substance: ACYCLOVIR
     Dosage: UNK UNK,TID
     Route: 048
     Dates: start: 20170116, end: 20170123

REACTIONS (20)
  - Subcutaneous haematoma [Not Recovered/Not Resolved]
  - Blood pressure fluctuation [Not Recovered/Not Resolved]
  - Respiratory tract infection [Recovered/Resolved]
  - Pruritus [Recovered/Resolved]
  - Neuritis [Not Recovered/Not Resolved]
  - Nasopharyngitis [Recovered/Resolved]
  - Arthralgia [Not Recovered/Not Resolved]
  - Foot fracture [Not Recovered/Not Resolved]
  - Headache [Recovered/Resolved]
  - Headache [Recovering/Resolving]
  - Hypertension [Recovered/Resolved]
  - Immunodeficiency [Recovered/Resolved]
  - Cough [Recovered/Resolved]
  - Anaemia [Not Recovered/Not Resolved]
  - Palpitations [Not Recovered/Not Resolved]
  - Dermatitis allergic [Not Recovered/Not Resolved]
  - Influenza like illness [Recovered/Resolved]
  - Erythema [Recovered/Resolved]
  - Abdominal pain upper [Not Recovered/Not Resolved]
  - Ligament sprain [Not Recovered/Not Resolved]

NARRATIVE: CASE EVENT DATE: 2017
